FAERS Safety Report 5179896-4 (Version None)
Quarter: 2006Q4

REPORT INFORMATION
  Report Type: 
  Country: None (occurrence: None)
  Receive Date: 20061212
  Receipt Date: 20061129
  Transmission Date: 20070319
  Serious: Yes (Hospitalization, Other)
  Sender: FDA-Public Use
  Company Number: 2006143329

PATIENT
  Age: 37 Year
  Sex: Female
  Weight: 50 kg

DRUGS (2)
  1. SUTENT [Suspect]
     Indication: RENAL CELL CARCINOMA STAGE UNSPECIFIED
     Dosage: 50 MG
     Dates: start: 20060601
  2. OMEPRAZOLE [Concomitant]

REACTIONS (12)
  - ACIDOSIS [None]
  - BLISTER [None]
  - DEHYDRATION [None]
  - DRUG TOXICITY [None]
  - DYSPEPSIA [None]
  - HYPERKERATOSIS [None]
  - MUSCLE RIGIDITY [None]
  - NAUSEA [None]
  - PAIN IN EXTREMITY [None]
  - SKIN DISCOLOURATION [None]
  - SYNOVIAL CYST [None]
  - VOMITING [None]
